FAERS Safety Report 7930203-0 (Version None)
Quarter: 2011Q4

REPORT INFORMATION
  Report Type: 
  Country: None (occurrence: None)
  Receive Date: 20111121
  Receipt Date: 20111116
  Transmission Date: 20120403
  Serious: Yes (Hospitalization, Other)
  Sender: FDA-Public Use
  Company Number: US-VERTEX PHARMACEUTICALS INC.-AE-2011-001094

PATIENT
  Sex: Female
  Weight: 81.8 kg

DRUGS (11)
  1. INCIVEK [Suspect]
     Indication: HEPATITIS C
     Route: 048
     Dates: start: 20110811
  2. RIBAVIRIN [Concomitant]
     Indication: HEPATITIS C
     Route: 048
     Dates: start: 20110811
  3. CITALOPRAM HYDROBROMIDE [Concomitant]
     Indication: DEPRESSION
     Route: 048
  4. ATIVAN [Concomitant]
     Indication: ANXIETY
     Route: 048
  5. SPIRIVA [Concomitant]
  6. PEG-INTRON [Concomitant]
     Indication: HEPATITIS C
     Route: 058
     Dates: start: 20110811
  7. ALBUTEROL [Concomitant]
  8. BUPROPION HCL [Concomitant]
     Indication: DEPRESSION
  9. NAPROXEN [Concomitant]
  10. MIRTAZAPINE [Concomitant]
  11. PROPRANOLOL [Concomitant]

REACTIONS (6)
  - HYPOXIA [None]
  - FATIGUE [None]
  - CONFUSIONAL STATE [None]
  - PNEUMONIA [None]
  - DYSPNOEA [None]
  - ANAEMIA [None]
